FAERS Safety Report 8274292-5 (Version None)
Quarter: 2012Q2

REPORT INFORMATION
  Report Type: 
  Country: None (occurrence: None)
  Receive Date: 20120411
  Receipt Date: 20120411
  Transmission Date: 20120825
  Serious: Yes (Other)
  Sender: FDA-Public Use
  Company Number: None

PATIENT
  Age: 27 Year
  Sex: Female
  Weight: 54.431 kg

DRUGS (2)
  1. CIPROFLOXACIN HYDROCHLORIDE [Concomitant]
     Indication: URINARY TRACT INFECTION
     Dosage: 500MG
     Route: 048
     Dates: start: 20120130, end: 20120131
  2. VYVANSE [Suspect]
     Indication: ATTENTION DEFICIT/HYPERACTIVITY DISORDER
     Dosage: 50.0 MG
     Route: 048
     Dates: start: 20110401, end: 20120410

REACTIONS (9)
  - RESTLESSNESS [None]
  - INSOMNIA [None]
  - FEELING ABNORMAL [None]
  - DRUG INTERACTION [None]
  - DRUG LEVEL INCREASED [None]
  - ANXIETY [None]
  - PAIN [None]
  - SOMNOLENCE [None]
  - AGITATION [None]
